FAERS Safety Report 11348985 (Version 3)
Quarter: 2016Q1

REPORT INFORMATION
  Report Type: Report from Study
  Country: US (occurrence: US)
  Receive Date: 20150807
  Receipt Date: 20160329
  Transmission Date: 20160525
  Serious: Yes (Other)
  Sender: FDA-Public Use
  Company Number: US-ACTELION-A-NJ2015-122105

PATIENT
  Age: 89 Year
  Sex: Female

DRUGS (4)
  1. VENTAVIS [Suspect]
     Active Substance: ILOPROST
     Indication: PULMONARY ARTERIAL HYPERTENSION
     Dosage: 5 MCG, 6-9 TIMES DAILY
     Route: 055
     Dates: start: 20070928
  2. REVATIO [Concomitant]
     Active Substance: SILDENAFIL CITRATE
  3. TRACLEER [Concomitant]
     Active Substance: BOSENTAN
     Indication: PULMONARY ARTERIAL HYPERTENSION
     Route: 048
  4. VENTAVIS [Suspect]
     Active Substance: ILOPROST
     Dosage: 5 MCG, QID
     Route: 055

REACTIONS (3)
  - Skin cancer [Unknown]
  - Skin operation [Unknown]
  - Localised infection [Unknown]

NARRATIVE: CASE EVENT DATE: 2011
